FAERS Safety Report 5755434-X (Version None)
Quarter: 2008Q2

REPORT INFORMATION
  Report Type: 
  Country: None (occurrence: None)
  Receive Date: 20080529
  Receipt Date: 20080529
  Transmission Date: 20081010
  Serious: Yes (Death)
  Sender: FDA-Public Use
  Company Number: None

PATIENT
  Age: 61 Year
  Sex: Male
  Weight: 83.9154 kg

DRUGS (1)
  1. DIGITEK   125 MCG  BERTEK [Suspect]
     Indication: CARDIAC FAILURE CONGESTIVE
     Dosage: 1 TABLET DAILY PO
     Route: 048
     Dates: start: 20060918, end: 20070912

REACTIONS (1)
  - PHARMACEUTICAL PRODUCT COMPLAINT [None]
